FAERS Safety Report 4448471-9 (Version None)
Quarter: 2004Q3

REPORT INFORMATION
  Report Type: 
  Country: None (occurrence: None)
  Receive Date: 20040909
  Receipt Date: 20040902
  Transmission Date: 20050211
  Serious: Yes (Other)
  Sender: FDA-Public Use
  Company Number: 200410192BSV

PATIENT

DRUGS (3)
  1. CIPROFLOXACIN [Suspect]
     Dosage: 100 ML, TOTAL DAILY, INTRAVENOUS
     Route: 042
     Dates: start: 20040801
  2. FUROSEMIDE [Suspect]
     Dosage: INTRAVENOUS
     Route: 042
  3. TPN ELECTROLYTES IN PLASTIC CONTAINER [Suspect]
     Dosage: INTRAVENOUS
     Route: 042

REACTIONS (1)
  - PHARMACEUTICAL PRODUCT COMPLAINT [None]
